FAERS Safety Report 15813412 (Version 1)
Quarter: 2019Q1

REPORT INFORMATION
  Report Type: Spontaneous
  Country: DE (occurrence: DE)
  Receive Date: 20190111
  Receipt Date: 20190111
  Transmission Date: 20190417
  Serious: Yes (Death, Hospitalization)
  Sender: FDA-Public Use
  Company Number: DE-MYLANLABS-2019M1001983

PATIENT
  Age: 74 Year
  Sex: Male
  Weight: 57 kg

DRUGS (7)
  1. FLUCLOXACILLIN [Concomitant]
     Active Substance: FLUCLOXACILLIN
     Indication: KLEBSIELLA INFECTION
     Dosage: UNK
  2. PREDNISOLONE. [Concomitant]
     Active Substance: PREDNISOLONE
     Dosage: 5 MILLIGRAM
  3. FOLIC ACID. [Concomitant]
     Active Substance: FOLIC ACID
     Dosage: UNK
  4. METHOTREXATE. [Suspect]
     Active Substance: METHOTREXATE
     Indication: RHEUMATOID ARTHRITIS
     Dosage: IN ADDITION TO REGULAR 25 MILLIGRAM PER WEEK (RESULTING IN 3 MTX 25 MG INJECTIONS WITHIN 8 DAYS)
     Route: 058
  5. NOVALGIN (METAMIZOLE SODIUM) [Concomitant]
     Active Substance: METAMIZOLE SODIUM
     Dosage: UNK
  6. METHOTREXATE. [Suspect]
     Active Substance: METHOTREXATE
     Dosage: 25 MILLIGRAM, QW (ALWAYS ON THE WEEKEND )
     Route: 058
  7. COTRIM [Concomitant]
     Active Substance: SULFAMETHOXAZOLE\TRIMETHOPRIM
     Indication: DECUBITUS ULCER
     Dosage: UNK

REACTIONS (7)
  - Anaemia [Unknown]
  - Inappropriate schedule of product administration [Fatal]
  - Acute kidney injury [Unknown]
  - Thrombocytopenia [Unknown]
  - Accidental overdose [Fatal]
  - Septic shock [Fatal]
  - Leukopenia [Unknown]

NARRATIVE: CASE EVENT DATE: 20170320
